FAERS Safety Report 15004631 (Version 1)
Quarter: 2018Q2

REPORT INFORMATION
  Report Type: Spontaneous
  Country: FR (occurrence: FR)
  Receive Date: 20180613
  Receipt Date: 20180613
  Transmission Date: 20180711
  Serious: Yes (Hospitalization)
  Sender: FDA-Public Use
  Company Number: FR-KRKA, D.D., NOVO MESTO-2049327

PATIENT
  Age: 84 Year
  Sex: Female

DRUGS (27)
  1. GALVUS [Suspect]
     Active Substance: VILDAGLIPTIN
     Route: 048
  2. CACIT VITAMINE D3 [Concomitant]
     Active Substance: CALCIUM CARBONATE\CHOLECALCIFEROL
     Route: 048
  3. LERCANIDIPINE [Concomitant]
     Active Substance: LERCANIDIPINE
     Route: 048
  4. COUMADIN [Suspect]
     Active Substance: WARFARIN SODIUM
     Route: 048
  5. TARDYFERON [Concomitant]
     Active Substance: FERROUS SULFATE
  6. ATORVASTATIN CALCIUM. [Concomitant]
     Active Substance: ATORVASTATIN CALCIUM
     Route: 048
  7. AZITHROMYCIN ANHYDROUS. [Concomitant]
     Active Substance: AZITHROMYCIN ANHYDROUS
     Route: 048
  8. KARDEGIC [Suspect]
     Active Substance: ASPIRIN DL-LYSINE
     Route: 048
  9. IMOVANE [Concomitant]
     Active Substance: ZOPICLONE
  10. PANTOPRAZOLE SODIUM. [Concomitant]
     Active Substance: PANTOPRAZOLE SODIUM
     Route: 048
  11. LYRICA [Concomitant]
     Active Substance: PREGABALIN
     Route: 048
  12. METFORMIN HYDROCHLORIDE. [Concomitant]
     Active Substance: METFORMIN HYDROCHLORIDE
     Route: 048
  13. CELIPROLOL [Concomitant]
     Active Substance: CELIPROLOL
     Route: 048
  14. PERINDOPRIL ERBUMINE. [Concomitant]
     Active Substance: PERINDOPRIL ERBUMINE
     Route: 048
  15. LASILIX [Suspect]
     Active Substance: FUROSEMIDE
     Route: 048
  16. TAHOR [Concomitant]
     Active Substance: ATORVASTATIN CALCIUM
     Route: 048
  17. ISOPHANE INSULIN [Concomitant]
     Active Substance: INSULIN NOS
     Route: 058
  18. LANSOPRAZOLE. [Suspect]
     Active Substance: LANSOPRAZOLE
     Indication: GASTROOESOPHAGEAL REFLUX DISEASE
     Route: 048
  19. ALLOPURINOL. [Suspect]
     Active Substance: ALLOPURINOL
     Route: 048
  20. BURINEX [Suspect]
     Active Substance: BUMETANIDE
     Route: 048
  21. TOPALGIC (TRAMADOL HYDROCHLORIDE) [Suspect]
     Active Substance: TRAMADOL HYDROCHLORIDE
     Route: 048
  22. REPAGLINIDE. [Concomitant]
     Active Substance: REPAGLINIDE
     Route: 048
  23. DOLIPRANE [Concomitant]
     Active Substance: ACETAMINOPHEN
     Route: 048
  24. TOUJEO [Concomitant]
     Active Substance: INSULIN GLARGINE
     Route: 058
  25. VOLTAREN [Suspect]
     Active Substance: DICLOFENAC SODIUM
  26. NOVORAPID [Concomitant]
     Active Substance: INSULIN ASPART
  27. PREVISCAN (FLUINDIONE) [Concomitant]
     Active Substance: FLUINDIONE

REACTIONS (2)
  - Rash [Recovered/Resolved]
  - Pemphigoid [Recovered/Resolved]

NARRATIVE: CASE EVENT DATE: 201611
